FAERS Safety Report 19194158 (Version 1)
Quarter: 2021Q2

REPORT INFORMATION
  Report Type: Spontaneous
  Country: US (occurrence: US)
  Receive Date: 20210429
  Receipt Date: 20210429
  Transmission Date: 20210717
  Serious: No
  Sender: FDA-Public Use
  Company Number: None

PATIENT
  Age: 51 Year
  Sex: Male

DRUGS (2)
  1. DEXAMETHASONE. [Suspect]
     Active Substance: DEXAMETHASONE
     Indication: PRODUCT DISPENSING ERROR
     Route: 048
     Dates: start: 20210422, end: 20210423
  2. DEXAMETHASONE 4MG QDAY [Concomitant]
     Active Substance: DEXAMETHASONE
     Dates: start: 20210422, end: 20210423

REACTIONS (3)
  - Treatment noncompliance [None]
  - Product dispensing error [None]
  - Wrong product administered [None]

NARRATIVE: CASE EVENT DATE: 20210422
